FAERS Safety Report 9687527 (Version 1)
Quarter: 2013Q4

REPORT INFORMATION
  Report Type: Spontaneous
  Country: DE (occurrence: DE)
  Receive Date: 20131114
  Receipt Date: 20131114
  Transmission Date: 20140711
  Serious: Yes (Death)
  Sender: FDA-Public Use
  Company Number: DE-JNJFOC-20131106888

PATIENT
  Age: 73 Year
  Sex: Male
  Weight: 95 kg

DRUGS (3)
  1. XARELTO [Suspect]
     Indication: THROMBOSIS PROPHYLAXIS
     Route: 048
  2. XARELTO [Suspect]
     Indication: THROMBOSIS
     Route: 048
  3. CIPROFLOXACIN [Suspect]
     Indication: PROSTATITIS
     Route: 065

REACTIONS (2)
  - Diarrhoea [Fatal]
  - Blood electrolytes abnormal [Fatal]
